FAERS Safety Report 7206880-9 (Version None)
Quarter: 2011Q1

REPORT INFORMATION
  Report Type: 
  Country: None (occurrence: None)
  Receive Date: 20110103
  Receipt Date: 20101105
  Transmission Date: 20110831
  Serious: Yes (Hospitalization)
  Sender: FDA-Public Use
  Company Number: US-PFIZER INC-US-WYE-H18480310

PATIENT

DRUGS (4)
  1. AMOXICILLIN [Suspect]
  2. PREDNISONE [Suspect]
  3. ENBREL [Suspect]
     Indication: PSORIASIS
     Dosage: 50 MG, WEEKLY
     Dates: start: 20100918
  4. AZITHROMYCIN [Suspect]

REACTIONS (4)
  - SINUSITIS [None]
  - ADVERSE DRUG REACTION [None]
  - ERYTHRODERMIC PSORIASIS [None]
  - OEDEMA PERIPHERAL [None]
